FAERS Safety Report 7631012-2 (Version None)
Quarter: 2011Q3

REPORT INFORMATION
  Report Type: 
  Country: None (occurrence: None)
  Receive Date: 20110725
  Receipt Date: 20110713
  Transmission Date: 20111222
  Serious: No
  Sender: FDA-Public Use
  Company Number: US-BIOGENIDEC-2011BI026148

PATIENT
  Sex: Male

DRUGS (3)
  1. BACLOFEN [Concomitant]
     Indication: MUSCLE SPASMS
  2. AVONEX [Suspect]
     Indication: MULTIPLE SCLEROSIS
     Route: 030
     Dates: start: 20030801
  3. AVONEX [Suspect]
     Route: 030
     Dates: start: 20010713, end: 20030801

REACTIONS (6)
  - HYPOAESTHESIA [None]
  - EYE MOVEMENT DISORDER [None]
  - COGNITIVE DISORDER [None]
  - SENSATION OF HEAVINESS [None]
  - FATIGUE [None]
  - BALANCE DISORDER [None]
